FAERS Safety Report 8191976-8 (Version None)
Quarter: 2012Q1

REPORT INFORMATION
  Report Type: 
  Country: None (occurrence: None)
  Receive Date: 20120307
  Receipt Date: 20120301
  Transmission Date: 20120608
  Serious: Yes (Death, Other)
  Sender: FDA-Public Use
  Company Number: PHHY2012CO018668

PATIENT
  Sex: Female

DRUGS (7)
  1. ANTICOAGULANTS [Concomitant]
  2. SANDOSTATIN [Suspect]
     Indication: NEUROENDOCRINE TUMOUR
     Dosage: 0.3 MG, UNK
     Dates: start: 20120206
  3. LOSARTAN POTASSIUM [Concomitant]
  4. OMEPRAZOLE [Concomitant]
  5. CARVEDILOL [Concomitant]
  6. ENALAPRIL MALEATE [Concomitant]
  7. SANDOSTATIN LAR [Suspect]
     Indication: NEUROENDOCRINE TUMOUR
     Dosage: 20 MG, QMO
     Dates: start: 20120223

REACTIONS (2)
  - DEATH [None]
  - TERMINAL STATE [None]
